FAERS Safety Report 10417162 (Version 2)
Quarter: 2014Q3

REPORT INFORMATION
  Report Type: Report from Study
  Country: US (occurrence: US)
  Receive Date: 20140828
  Receipt Date: 20140915
  Transmission Date: 20150326
  Serious: Yes (Death)
  Sender: FDA-Public Use
  Company Number: US-ACTELION-A-US2014-104194

PATIENT
  Age: 83 Year
  Sex: Female

DRUGS (1)
  1. TRACLEER [Suspect]
     Active Substance: BOSENTAN\BOSENTAN MONOHYDRATE
     Indication: PULMONARY ARTERIAL HYPERTENSION
     Dosage: UNK
     Route: 048
     Dates: end: 20140703

REACTIONS (5)
  - Pulmonary arterial hypertension [Fatal]
  - Hypoxic-ischaemic encephalopathy [Fatal]
  - Disease progression [Fatal]
  - Respiratory arrest [Fatal]
  - Pulmonary fibrosis [Fatal]
